FAERS Safety Report 9010567 (Version 1)
Quarter: 2013Q1

REPORT INFORMATION
  Report Type: Spontaneous
  Country: GB (occurrence: GB)
  Receive Date: 20130109
  Receipt Date: 20130109
  Transmission Date: 20140127
  Serious: Yes (Disabling)
  Sender: FDA-Public Use
  Company Number: GB-BAUSCH-BL-2013-000024

PATIENT
  Age: 59 Year
  Sex: Male
  Weight: 90 kg

DRUGS (12)
  1. DEXAMETHASONE [Suspect]
     Indication: PLASMA CELL MYELOMA
     Dates: start: 20121008, end: 20121029
  2. BORTEZOMIB [Suspect]
     Indication: PLASMA CELL MYELOMA
     Dates: start: 20121008, end: 20121029
  3. NO DRUG NAME [Concomitant]
     Indication: PROPHYLAXIS
     Dates: start: 201202
  4. NO DRUG NAME [Concomitant]
     Indication: PROPHYLAXIS
     Dates: start: 201202
  5. NO DRUG NAME [Concomitant]
     Indication: BACK PAIN
  6. NO DRUG NAME [Concomitant]
     Dates: start: 201202
  7. NO DRUG NAME [Concomitant]
     Indication: DEPRESSION
  8. NO DRUG NAME [Concomitant]
     Dates: start: 201202
  9. NO DRUG NAME [Concomitant]
     Dates: start: 201202
  10. NO DRUG NAME [Concomitant]
     Indication: PULMONARY EMBOLISM
     Dates: start: 201206
  11. NO DRUG NAME [Concomitant]
     Indication: DEPRESSION
  12. NO DRUG NAME [Concomitant]

REACTIONS (2)
  - Drug ineffective [Unknown]
  - Cardiomyopathy [Not Recovered/Not Resolved]
